FAERS Safety Report 7832093-3 (Version None)
Quarter: 2011Q4

REPORT INFORMATION
  Report Type: 
  Country: None (occurrence: None)
  Receive Date: 20111022
  Receipt Date: 20111010
  Transmission Date: 20120403
  Serious: Yes (Hospitalization, Other)
  Sender: FDA-Public Use
  Company Number: US-BAYER-2010-005826

PATIENT
  Sex: Female
  Weight: 60.771 kg

DRUGS (11)
  1. IBUPROFEN (ADVIL) [Concomitant]
  2. POTASSIUM CHLORIDE [Concomitant]
  3. YAZ [Suspect]
     Indication: CONTRACEPTION
  4. HYDROCODONE BITARTRATE AND ACETAMINOPHEN [Concomitant]
  5. FLEXERIL [Concomitant]
  6. YAZ [Suspect]
     Indication: ACNE
     Dosage: UNK
     Dates: start: 20080101
  7. AUGMENTIN [Concomitant]
     Indication: MALAISE
     Dosage: UNK UNK, PRN
  8. RETIN-A [Concomitant]
  9. ALLEGRA [Concomitant]
  10. CYCLOBENZAPRINE [Concomitant]
  11. LEVAQUIN [Concomitant]

REACTIONS (5)
  - PAIN [None]
  - DEEP VEIN THROMBOSIS [None]
  - PAIN IN EXTREMITY [None]
  - INJURY [None]
  - ABASIA [None]
